FAERS Safety Report 4487765-8 (Version None)
Quarter: 2004Q4

REPORT INFORMATION
  Report Type: 
  Country: None (occurrence: None)
  Receive Date: 20041028
  Receipt Date: 20041022
  Transmission Date: 20050328
  Serious: Yes (Death)
  Sender: FDA-Public Use
  Company Number: 200418141US

PATIENT
  Age: 33 Year
  Sex: Male

DRUGS (1)
  1. KETEK [Suspect]
     Dosage: DOSE: NOT PROVIDED

REACTIONS (1)
  - DEATH [None]
